FAERS Safety Report 6964037-0 (Version None)
Quarter: 2010Q3

REPORT INFORMATION
  Report Type: 
  Country: None (occurrence: None)
  Receive Date: 20100902
  Receipt Date: 20100826
  Transmission Date: 20110219
  Serious: Yes (Other)
  Sender: FDA-Public Use
  Company Number: US-AMGEN-QUU434461

PATIENT
  Sex: Female

DRUGS (3)
  1. NPLATE [Suspect]
     Indication: IDIOPATHIC THROMBOCYTOPENIC PURPURA
     Dates: start: 20091123, end: 20100601
  2. CORTICOSTEROIDS [Concomitant]
     Dates: start: 20091019
  3. RITUXIMAB [Concomitant]
     Dates: start: 20091109

REACTIONS (1)
  - EMBOLIC STROKE [None]
